FAERS Safety Report 17788188 (Version 1)
Quarter: 2020Q2

REPORT INFORMATION
  Report Type: Spontaneous
  Country: AT (occurrence: AT)
  Receive Date: 20200514
  Receipt Date: 20200514
  Transmission Date: 20200714
  Serious: Yes (Hospitalization, Other)
  Sender: FDA-Public Use
  Company Number: PHHY2017AT147323

PATIENT
  Age: 50 Year
  Sex: Female

DRUGS (36)
  1. RISPERDAL [Concomitant]
     Active Substance: RISPERIDONE
     Indication: PRODUCT USED FOR UNKNOWN INDICATION
     Dosage: 2 MG, QD
     Route: 065
     Dates: start: 20170110, end: 20170110
  2. RISPERDAL [Concomitant]
     Active Substance: RISPERIDONE
     Dosage: 6 MG, QD
     Route: 065
     Dates: start: 20170124
  3. QUILONORM [Concomitant]
     Active Substance: LITHIUM
     Indication: PRODUCT USED FOR UNKNOWN INDICATION
     Dosage: 225 MG, QD
     Route: 065
     Dates: start: 20170111, end: 20170117
  4. BRINTELLIX [Suspect]
     Active Substance: VORTIOXETINE HYDROBROMIDE
     Dosage: 10 MG, QD
     Route: 048
     Dates: start: 20170131, end: 20170131
  5. TEMESTA [Concomitant]
     Dosage: 10 MG, QD
     Route: 065
     Dates: start: 20170112, end: 20170118
  6. TEMESTA [Concomitant]
     Dosage: 2 MG, QD
     Route: 065
     Dates: start: 20170306
  7. LOVENOX [Concomitant]
     Active Substance: ENOXAPARIN SODIUM
     Indication: PRODUCT USED FOR UNKNOWN INDICATION
     Dosage: 40 MG, QD
     Route: 058
     Dates: start: 20170107, end: 20170117
  8. EFECTIN [Suspect]
     Active Substance: VENLAFAXINE HYDROCHLORIDE
     Dosage: 150 MG, QD
     Route: 065
     Dates: start: 20170111, end: 20170130
  9. TOPAMAX [Suspect]
     Active Substance: TOPIRAMATE
     Dosage: 50 MG, QD
     Route: 065
     Dates: start: 20170130, end: 20170130
  10. TEMESTA [Concomitant]
     Dosage: 7.5 MG, QD
     Route: 065
     Dates: start: 20170130, end: 20170206
  11. RISPERDAL [Concomitant]
     Active Substance: RISPERIDONE
     Dosage: 3 MG, QD
     Route: 065
     Dates: start: 20170111, end: 20170111
  12. QUILONORM [Concomitant]
     Active Substance: LITHIUM
     Dosage: 675 MG, QD
     Route: 065
     Dates: start: 20170124
  13. ANAFRANIL [Suspect]
     Active Substance: CLOMIPRAMINE HYDROCHLORIDE
     Indication: PRODUCT USED FOR UNKNOWN INDICATION
     Dosage: 75 MG, QD
     Route: 065
     Dates: end: 20170112
  14. LYRICA [Suspect]
     Active Substance: PREGABALIN
     Dosage: 300 MG, QD
     Route: 048
     Dates: start: 20170130, end: 20170131
  15. TEMESTA [Concomitant]
     Dosage: 11.25 MG, UNK
     Route: 065
     Dates: start: 20170108, end: 20170109
  16. TEMESTA [Concomitant]
     Dosage: 6.75 MG, QD
     Route: 065
     Dates: start: 20170124, end: 20170129
  17. TEMESTA [Concomitant]
     Dosage: 3 MG, QD
     Route: 065
     Dates: start: 20170301, end: 20170305
  18. QUILONORM [Concomitant]
     Active Substance: LITHIUM
     Dosage: 450 MG, QD
     Route: 065
     Dates: start: 20170118, end: 20170123
  19. EFECTIN [Suspect]
     Active Substance: VENLAFAXINE HYDROCHLORIDE
     Indication: PRODUCT USED FOR UNKNOWN INDICATION
     Dosage: 225 MG, QD
     Route: 065
     Dates: start: 201611, end: 20170110
  20. TOPAMAX [Suspect]
     Active Substance: TOPIRAMATE
     Dosage: 75 MG, QD
     Route: 065
     Dates: start: 20170120, end: 20170129
  21. TEMESTA [Concomitant]
     Dosage: 12.5 MG, QD
     Route: 065
     Dates: start: 20170110, end: 20170111
  22. TEMESTA [Concomitant]
     Dosage: 7.5 MG, QD
     Route: 065
     Dates: start: 20170119, end: 20170123
  23. RISPERDAL [Concomitant]
     Active Substance: RISPERIDONE
     Dosage: 4 MG, QD
     Route: 065
     Dates: start: 20170112, end: 20170123
  24. BEZAFIBRAT [Concomitant]
     Active Substance: BEZAFIBRATE
     Indication: PRODUCT USED FOR UNKNOWN INDICATION
     Dosage: 400 MG, QD (SINCE MONTHS)
     Route: 065
  25. TEMESTA [Concomitant]
     Dosage: 6.75 MG, QD
     Route: 065
     Dates: start: 20170207, end: 20170208
  26. TEMESTA [Concomitant]
     Dosage: 4 MG, QD
     Route: 065
     Dates: start: 20170220, end: 20170228
  27. SEROQUEL [Concomitant]
     Active Substance: QUETIAPINE FUMARATE
     Indication: PRODUCT USED FOR UNKNOWN INDICATION
     Dosage: 200 MG, QD
     Route: 065
     Dates: start: 20170107, end: 20170107
  28. SEROQUEL [Concomitant]
     Active Substance: QUETIAPINE FUMARATE
     Dosage: 300 MG, QD
     Route: 065
     Dates: start: 20170108, end: 20170109
  29. METOPROLOL. [Concomitant]
     Active Substance: METOPROLOL
     Indication: PRODUCT USED FOR UNKNOWN INDICATION
     Dosage: 50 MG, QD (SINCE MONTHS)
     Route: 048
  30. TOPAMAX [Suspect]
     Active Substance: TOPIRAMATE
     Indication: PRODUCT USED FOR UNKNOWN INDICATION
     Dosage: 100 MG, QD (SINCE MONTHS)
     Route: 065
     Dates: end: 20170119
  31. BRINTELLIX [Suspect]
     Active Substance: VORTIOXETINE HYDROBROMIDE
     Indication: PRODUCT USED FOR UNKNOWN INDICATION
     Dosage: 20 MG, QD (SINCE MONTHS)
     Route: 048
     Dates: end: 20170130
  32. TEMESTA [Concomitant]
     Indication: PRODUCT USED FOR UNKNOWN INDICATION
     Dosage: 7.5 MG, QD
     Route: 065
     Dates: start: 20170105, end: 20170105
  33. LYRICA [Suspect]
     Active Substance: PREGABALIN
     Indication: PRODUCT USED FOR UNKNOWN INDICATION
     Dosage: 450 MG, QD (SINCE MONTHS)
     Route: 048
     Dates: end: 20170129
  34. PANTOLOC [Concomitant]
     Active Substance: PANTOPRAZOLE SODIUM
     Indication: PRODUCT USED FOR UNKNOWN INDICATION
     Dosage: 40 MG, QD (SINCE MONTHS)
     Route: 048
  35. TEMESTA [Concomitant]
     Dosage: 10 MG, QD
     Route: 065
     Dates: start: 20170106, end: 20170107
  36. TEMESTA [Concomitant]
     Dosage: 5 MG, QD
     Route: 065
     Dates: start: 20170209, end: 20170219

REACTIONS (6)
  - Urinary tract infection [Recovered/Resolved]
  - Psychomotor hyperactivity [Unknown]
  - Confusional state [Recovered/Resolved]
  - Delirium [Recovering/Resolving]
  - Drug interaction [Unknown]
  - Hallucinations, mixed [Unknown]

NARRATIVE: CASE EVENT DATE: 20170105
